FAERS Safety Report 13656382 (Version 1)
Quarter: 2017Q2

REPORT INFORMATION
  Report Type: Spontaneous
  Country: IT (occurrence: IT)
  Receive Date: 20170615
  Receipt Date: 20170615
  Transmission Date: 20170830
  Serious: Yes (Other)
  Sender: FDA-Public Use
  Company Number: PHHY2017IT085902

PATIENT
  Age: 77 Year
  Sex: Female

DRUGS (2)
  1. TAFINLAR [Suspect]
     Active Substance: DABRAFENIB MESYLATE
     Indication: VULVAL CANCER METASTATIC
     Dosage: 300 MG, QD
     Route: 048
     Dates: start: 20170316, end: 20170607
  2. MEKINIST [Suspect]
     Active Substance: TRAMETINIB DIMETHYL SULFOXIDE
     Indication: VULVAL CANCER METASTATIC
     Dosage: 2 MG, QD
     Route: 048
     Dates: start: 20170316, end: 20170607

REACTIONS (4)
  - Product use in unapproved indication [Unknown]
  - Anaemia [Recovered/Resolved]
  - Hypertransaminasaemia [Recovered/Resolved]
  - Thrombocytopenia [Recovered/Resolved]

NARRATIVE: CASE EVENT DATE: 20170330
